FAERS Safety Report 9845820 (Version 1)
Quarter: 2013Q4

REPORT INFORMATION
  Report Type: Spontaneous
  Country: US (occurrence: None)
  Receive Date: 20131219
  Receipt Date: 20131219
  Transmission Date: 20140711
  Serious: Yes (Hospitalization)
  Sender: FDA-Public Use
  Company Number: 163-20785-13083331

PATIENT
  Age: 79 Year
  Sex: Female

DRUGS (8)
  1. THALOMID (THALIDOMIDE) (200 MILLIGRAM, CAPSULES) [Suspect]
     Indication: PLASMA CELL MYELOMA
     Route: 048
     Dates: start: 201305
  2. HUMULIN 70/30 [Concomitant]
  3. CALCIUM ACETATE [Concomitant]
  4. DEXAMETHASONE [Concomitant]
  5. ASA (ACETYLSALICYLIC ACID) [Concomitant]
  6. OXYCODONE [Concomitant]
  7. MS CONTIN (MORPHINE SULFATE) [Concomitant]
  8. LYRICA (PREGABALIN) [Concomitant]

REACTIONS (1)
  - Haemoglobin decreased [None]
